FAERS Safety Report 9105211 (Version 1)
Quarter: 2013Q1

REPORT INFORMATION
  Report Type: Spontaneous
  Country: AU (occurrence: AU)
  Receive Date: 20130220
  Receipt Date: 20130220
  Transmission Date: 20140127
  Serious: Yes (Other)
  Sender: FDA-Public Use
  Company Number: PHHY2013AU015852

PATIENT
  Sex: Female

DRUGS (2)
  1. ACLASTA [Suspect]
     Dosage: UNK
     Route: 042
     Dates: start: 20110204
  2. ACLASTA [Suspect]
     Dosage: UNK
     Route: 042
     Dates: start: 20120217

REACTIONS (2)
  - Accident [Unknown]
  - Back injury [Unknown]
